FAERS Safety Report 18586416 (Version 1)
Quarter: 2020Q4

REPORT INFORMATION
  Report Type: Spontaneous
  Country: US (occurrence: US)
  Receive Date: 20201207
  Receipt Date: 20201207
  Transmission Date: 20210114
  Serious: No
  Sender: FDA-Public Use
  Company Number: US-SA-2020SA346164

PATIENT

DRUGS (2)
  1. LANTUS SOLOSTAR [Suspect]
     Active Substance: INSULIN GLARGINE
     Indication: TYPE 2 DIABETES MELLITUS
     Dosage: 40 UNITS IN THE MORNING AND 50 UNITS AT NIGHT, BID
     Route: 065
  2. LANTUS SOLOSTAR [Suspect]
     Active Substance: INSULIN GLARGINE
     Dosage: 36 UNITS IN THE MORNING AND 50 UNITS AT NIGHT, BID
     Route: 065

REACTIONS (3)
  - Product storage error [Unknown]
  - Intentional product use issue [Unknown]
  - Off label use [Unknown]
